FAERS Safety Report 20668819 (Version 1)
Quarter: 2022Q2

REPORT INFORMATION
  Report Type: Spontaneous
  Country: US (occurrence: US)
  Receive Date: 20220404
  Receipt Date: 20220404
  Transmission Date: 20220721
  Serious: No
  Sender: FDA-Public Use
  Company Number: US-PFIZER INC-202100941387

PATIENT
  Age: 57 Year
  Sex: Female

DRUGS (2)
  1. INLYTA [Interacting]
     Active Substance: AXITINIB
     Dosage: 5 MG
     Dates: start: 20210615
  2. DILTIAZEM HYDROCHLORIDE [Interacting]
     Active Substance: DILTIAZEM HYDROCHLORIDE
     Dosage: UNK

REACTIONS (2)
  - Epistaxis [Unknown]
  - Drug interaction [Unknown]
